FAERS Safety Report 8093640-2 (Version None)
Quarter: 2011Q4

REPORT INFORMATION
  Report Type: 
  Country: None (occurrence: None)
  Receive Date: 20111222
  Receipt Date: 20110908
  Transmission Date: 20120403
  Serious: Yes (Hospitalization)
  Sender: FDA-Public Use
  Company Number: UTC-009337

PATIENT
  Age: 4 Year
  Sex: Male
  Weight: 15.9 kg

DRUGS (5)
  1. REVATIO [Concomitant]
  2. DIURETICS (DIURETICS) [Concomitant]
  3. TYVASO [Suspect]
     Indication: COR PULMONALE CHRONIC
     Dosage: 6 TO 54  MICROGRAMS (4 IN 1 D), INHALATION
     Route: 055
     Dates: start: 20110323, end: 20110621
  4. TRACLEER [Concomitant]
  5. COUMADIN [Concomitant]

REACTIONS (2)
  - CONDITION AGGRAVATED [None]
  - HEART DISEASE CONGENITAL [None]
